FAERS Safety Report 5047901-1 (Version None)
Quarter: 2006Q3

REPORT INFORMATION
  Report Type: 
  Country: None (occurrence: None)
  Receive Date: 20060711
  Receipt Date: 20060707
  Transmission Date: 20061208
  Serious: Yes (Hospitalization)
  Sender: FDA-Public Use
  Company Number: US-GLAXOSMITHKLINE-A0611614A

PATIENT
  Sex: Female

DRUGS (2)
  1. LOTRONEX [Suspect]
     Indication: IRRITABLE BOWEL SYNDROME
     Route: 048
     Dates: start: 20050101, end: 20060201
  2. OTHER MEDICATIONS [Concomitant]

REACTIONS (3)
  - CAECUM OPERATION [None]
  - CARDIAC OPERATION [None]
  - DIALYSIS [None]
